FAERS Safety Report 4312863-9 (Version None)
Quarter: 2004Q1

REPORT INFORMATION
  Report Type: 
  Country: None (occurrence: None)
  Receive Date: 20040304
  Receipt Date: 20040223
  Transmission Date: 20041129
  Serious: No
  Sender: FDA-Public Use
  Company Number: 04P-167-0251520-00

PATIENT
  Age: 33 Year
  Sex: Female
  Weight: 58.514 kg

DRUGS (5)
  1. MERIDIA [Suspect]
     Indication: OBESITY
     Dosage: 10 MG, ORAL
     Route: 048
     Dates: start: 20040204
  2. CONTRACEPTIVE IMPLANT [Suspect]
     Indication: DRUG USE FOR UNKNOWN INDICATION
  3. IBUPROFEN [Concomitant]
  4. NORETHISTERONE [Concomitant]
  5. PREDNISOLONE [Concomitant]

REACTIONS (2)
  - DRUG INTERACTION [None]
  - HAEMORRHAGE [None]
